FAERS Safety Report 6551013-5 (Version None)
Quarter: 2010Q1

REPORT INFORMATION
  Report Type: 
  Country: None (occurrence: None)
  Receive Date: 20100125
  Receipt Date: 20100115
  Transmission Date: 20100710
  Serious: Yes (Hospitalization)
  Sender: FDA-Public Use
  Company Number: DE-AMGEN-US387222

PATIENT
  Age: 77 Year
  Sex: Male

DRUGS (6)
  1. ENBREL [Suspect]
     Indication: PSORIASIS
     Route: 058
     Dates: start: 20090101
  2. ARICEPT [Concomitant]
     Dosage: 10MG (FREQUENCY UNKNOWN)
     Route: 065
  3. OMEPRAZOLE [Concomitant]
     Route: 065
  4. SIMVASTATIN [Concomitant]
     Dosage: 20MG (FREQUENCY UNKNOWN)
     Route: 065
  5. HYDROCHLOROTHIAZIDE [Concomitant]
     Dosage: 25MG (FREQUENCY UNKNOWN)
     Route: 065
  6. ENALAPRIL MALEATE [Concomitant]
     Dosage: 20MG (FREQUENCY UNKNOWN)
     Route: 065

REACTIONS (5)
  - FACIAL BONES FRACTURE [None]
  - FALL [None]
  - HEPATIC ENZYME INCREASED [None]
  - LACTOSE INTOLERANCE [None]
  - SYNCOPE [None]
